FAERS Safety Report 15366894 (Version 1)
Quarter: 2018Q3

REPORT INFORMATION
  Report Type: Spontaneous
  Country: US (occurrence: US)
  Receive Date: 20180910
  Receipt Date: 20180910
  Transmission Date: 20181010
  Serious: No
  Sender: FDA-Public Use
  Company Number: US-US WORLDMEDS, LLC-USW201708-001223

PATIENT
  Sex: Female

DRUGS (1)
  1. TEGASEROD [Suspect]
     Active Substance: TEGASEROD

REACTIONS (2)
  - Rash [Unknown]
  - Drug hypersensitivity [Unknown]
